FAERS Safety Report 12878898 (Version 12)
Quarter: 2017Q4

REPORT INFORMATION
  Report Type: Report from Study
  Country: DE (occurrence: DE)
  Receive Date: 20161024
  Receipt Date: 20171206
  Transmission Date: 20180320
  Serious: Yes (Hospitalization, Other)
  Sender: FDA-Public Use
  Company Number: DE-B.I. PHARMACEUTICALS,INC./RIDGEFIELD-2016-BI-067624

PATIENT
  Age: 71 Year
  Sex: Female
  Weight: 70 kg

DRUGS (17)
  1. METEX (METHOTREXATE) [Concomitant]
     Active Substance: METHOTREXATE
     Indication: SYSTEMIC SCLERODERMA
     Route: 058
     Dates: end: 20161023
  2. RIOPAN [Concomitant]
     Active Substance: MAGALDRATE
     Dosage: DAILY DOSE: 1600MG AS REQUIRED
     Route: 048
     Dates: start: 20161225, end: 20170117
  3. TROFEN [Concomitant]
     Indication: PAIN IN EXTREMITY
  4. SALBUTAMOL [Concomitant]
     Active Substance: ALBUTEROL
     Indication: COUGH
     Dosage: DAILY DOSE: 1.5MG AS REQUIRED
     Route: 055
     Dates: start: 20170301
  5. BIBF 1120 [Suspect]
     Active Substance: NINTEDANIB
     Indication: SYSTEMIC SCLERODERMA
     Route: 048
     Dates: start: 20160621
  6. L THYROXIN [Concomitant]
     Active Substance: LEVOTHYROXINE SODIUM
     Indication: HYPERTHYROIDISM
     Route: 048
  7. IBUFLAM [Concomitant]
     Active Substance: IBUPROFEN
     Indication: OSTEOARTHRITIS
     Dosage: DAILY DOSE: 1200 MG, AS REQUIRED
     Route: 048
  8. TROFEN [Concomitant]
     Indication: ABDOMINAL PAIN
     Dosage: DAILY DOSE: AS REQUIRED
     Route: 048
     Dates: start: 20160705, end: 20161010
  9. OMEPRAZOL [Concomitant]
     Active Substance: OMEPRAZOLE
     Indication: GASTROOESOPHAGEAL REFLUX DISEASE
     Route: 048
     Dates: end: 20161026
  10. IBUPROFEN. [Concomitant]
     Active Substance: IBUPROFEN
     Indication: PAIN IN EXTREMITY
  11. SODIUM CHLORIDE. [Concomitant]
     Active Substance: SODIUM CHLORIDE
     Indication: COUGH
     Dosage: DAILY DOSE: 0.9% AS REQUIRED
     Route: 055
     Dates: start: 20170301
  12. VIGANTOLETTEN [Concomitant]
     Active Substance: CHOLECALCIFEROL
     Indication: VITAMIN D DEFICIENCY
     Route: 048
  13. BIBF 1120 [Suspect]
     Active Substance: NINTEDANIB
     Indication: INTERSTITIAL LUNG DISEASE
  14. FOLIC ACID. [Concomitant]
     Active Substance: FOLIC ACID
     Indication: PROPHYLAXIS
     Route: 048
     Dates: end: 20161023
  15. RIOPAN [Concomitant]
     Active Substance: MAGALDRATE
     Indication: VOMITING
     Dosage: DAILY DOSE: 1600MG AS REQUIRED
     Route: 048
     Dates: start: 20160705, end: 20161010
  16. IBUPROFEN. [Concomitant]
     Active Substance: IBUPROFEN
     Indication: OSTEOARTHRITIS
     Route: 048
     Dates: start: 20160805, end: 201612
  17. JONOSTERIL [Concomitant]
     Active Substance: CALCIUM ACETATE\MAGNESIUM ACETATE\POTASSIUM ACETATE\SODIUM ACETATE\SODIUM CHLORIDE
     Indication: DIARRHOEA
     Route: 042
     Dates: start: 20161007, end: 20161007

REACTIONS (2)
  - Gastrointestinal disorder [Recovered/Resolved]
  - Pulmonary fibrosis [Not Recovered/Not Resolved]

NARRATIVE: CASE EVENT DATE: 20161007
